FAERS Safety Report 9009443 (Version 1)
Quarter: 2013Q1

REPORT INFORMATION
  Report Type: Spontaneous
  Country: US (occurrence: US)
  Receive Date: 20130112
  Receipt Date: 20130112
  Transmission Date: 20140127
  Serious: Yes (Hospitalization, Other)
  Sender: FDA-Public Use
  Company Number: US-009507513-1301USA001739

PATIENT
  Age: 45 Year
  Sex: Male

DRUGS (9)
  1. SINGULAIR [Suspect]
     Route: 048
  2. DIPROSONE (BETAMETHASONE DIPROPIONATE (+) BETAMETHASONE SODIUM PHOSPHA [Concomitant]
     Indication: ASTHMA
     Dosage: OTHER
  3. ASCORBIC ACID [Concomitant]
     Indication: HYPERSENSITIVITY
     Route: 048
  4. MAGNE B6 TABLETS [Concomitant]
     Route: 048
  5. NASONEX [Concomitant]
     Route: 045
  6. LOMUSOL [Concomitant]
     Route: 045
  7. BRICANYL [Concomitant]
     Dosage: RESPIRATORY (INHALATION)
  8. AUGMENTIN [Concomitant]
     Route: 048
  9. SERETIDE [Suspect]
     Dosage: RESPIRATORY (INHALATION)

REACTIONS (3)
  - Rash [Unknown]
  - Eosinophilia [Unknown]
  - Allergic granulomatous angiitis [Unknown]
